FAERS Safety Report 13378286 (Version 1)
Quarter: 2017Q1

REPORT INFORMATION
  Report Type: Spontaneous
  Country: US (occurrence: US)
  Receive Date: 20170328
  Receipt Date: 20170328
  Transmission Date: 20170429
  Serious: Yes (Life-Threatening, Other)
  Sender: FDA-Public Use
  Company Number: US-MYLANLABS-2017M1018580

PATIENT

DRUGS (2)
  1. PALIPERIDONE. [Concomitant]
     Active Substance: PALIPERIDONE
     Indication: SCHIZOPHRENIA
     Dosage: 1.5 MG DAILY
     Route: 048
  2. PALIPERIDONE. [Suspect]
     Active Substance: PALIPERIDONE
     Indication: SCHIZOPHRENIA
     Dosage: 234 MG, EVERY 3 WEEKS
     Route: 030

REACTIONS (3)
  - Drug administration error [Recovering/Resolving]
  - Injection site infection [Recovering/Resolving]
  - Necrotising soft tissue infection [Recovering/Resolving]
